FAERS Safety Report 22269912 (Version 3)
Quarter: 2023Q2

REPORT INFORMATION
  Report Type: Spontaneous
  Country: IE (occurrence: IE)
  Receive Date: 20230501
  Receipt Date: 20230525
  Transmission Date: 20230722
  Serious: Yes (Death, Hospitalization, Other)
  Sender: FDA-Public Use
  Company Number: IE-MYLANLABS-2023M1045799

PATIENT
  Age: 66 Year
  Sex: Male

DRUGS (1)
  1. CLOZARIL [Suspect]
     Active Substance: CLOZAPINE
     Indication: Schizophrenia
     Dosage: UNK
     Route: 048
     Dates: start: 20010701, end: 20230516

REACTIONS (4)
  - Death [Fatal]
  - Pneumonia aspiration [Unknown]
  - Dehydration [Unknown]
  - Constipation [Unknown]

NARRATIVE: CASE EVENT DATE: 20230522
